FAERS Safety Report 8552764-3 (Version None)
Quarter: 2012Q3

REPORT INFORMATION
  Report Type: 
  Country: None (occurrence: None)
  Receive Date: 20120731
  Receipt Date: 20120725
  Transmission Date: 20120928
  Serious: Yes (Other)
  Sender: FDA-Public Use
  Company Number: PHHY2012BR065188

PATIENT
  Age: 86 Year
  Sex: Female

DRUGS (2)
  1. STALEVO 100 [Suspect]
     Indication: PARKINSON'S DISEASE
     Dosage: 50/12.5/200 MG, ONE TABLET DAILY
  2. STALEVO 100 [Suspect]
     Dosage: 50/12.5/200 MG, TWO TABLETS DAILY

REACTIONS (1)
  - DEMENTIA ALZHEIMER'S TYPE [None]
